FAERS Safety Report 19811457 (Version 1)
Quarter: 2021Q3

REPORT INFORMATION
  Report Type: Spontaneous
  Country: US (occurrence: US)
  Receive Date: 20210909
  Receipt Date: 20210909
  Transmission Date: 20211014
  Serious: Yes (Hospitalization)
  Sender: FDA-Public Use
  Company Number: US-PFIZER INC-202101116465

PATIENT
  Age: 88 Year
  Sex: Female
  Weight: 72.57 kg

DRUGS (3)
  1. VYNDAMAX [Suspect]
     Active Substance: TAFAMIDIS
     Indication: CARDIOMYOPATHY
  2. VYNDAMAX [Suspect]
     Active Substance: TAFAMIDIS
     Indication: AMYLOIDOSIS
     Dosage: 61 MG, 1X/DAY (1PM)
     Route: 048
     Dates: start: 20210814
  3. VYNDAMAX [Suspect]
     Active Substance: TAFAMIDIS
     Indication: CARDIAC FAILURE CONGESTIVE

REACTIONS (6)
  - Dyspnoea [Unknown]
  - Solar lentigo [Unknown]
  - Myocardial infarction [Unknown]
  - Limb discomfort [Unknown]
  - Rash macular [Unknown]
  - Tremor [Recovered/Resolved]

NARRATIVE: CASE EVENT DATE: 202108
